FAERS Safety Report 20587011 (Version 2)
Quarter: 2022Q1

REPORT INFORMATION
  Report Type: Spontaneous
  Country: CO (occurrence: CO)
  Receive Date: 20220314
  Receipt Date: 20220315
  Transmission Date: 20220423
  Serious: Yes (Hospitalization)
  Sender: FDA-Public Use
  Company Number: CO-PFIZER INC-2021224567

PATIENT
  Age: 60 Year
  Sex: Female

DRUGS (2)
  1. ENBREL [Suspect]
     Active Substance: ETANERCEPT
     Indication: Rheumatoid arthritis
     Dosage: 50 MG
     Route: 058
     Dates: start: 2018, end: 20210213
  2. ENBREL [Suspect]
     Active Substance: ETANERCEPT
     Dosage: 50 MG, 1 APLICATION EACH 10 DAYS
     Route: 058
     Dates: start: 2020

REACTIONS (4)
  - Bursitis [Unknown]
  - Bursitis infective [Recovered/Resolved]
  - Off label use [Unknown]
  - Inflammation [Unknown]

NARRATIVE: CASE EVENT DATE: 20200101
